FAERS Safety Report 9199148 (Version 1)
Quarter: 2013Q1

REPORT INFORMATION
  Report Type: Spontaneous
  Country: US (occurrence: US)
  Receive Date: 20130329
  Receipt Date: 20130329
  Transmission Date: 20140127
  Serious: No
  Sender: FDA-Public Use
  Company Number: US-009507513-1303USA013151

PATIENT
  Sex: 0

DRUGS (1)
  1. AZASITE [Suspect]
     Indication: BLEPHARITIS
     Dosage: 0.65 ML SAMPLES, 2.5 ML BOTTLES, 1 DROP IN THE AFFECTED EYE TWICE DAILY FOR 2 DAYS AND THEN 1 DROP D
     Route: 047

REACTIONS (3)
  - Drug dose omission [Unknown]
  - Product quality issue [Unknown]
  - Off label use [Unknown]
